FAERS Safety Report 13949017 (Version 1)
Quarter: 2017Q3

REPORT INFORMATION
  Report Type: Report from Study
  Country: SE (occurrence: SE)
  Receive Date: 20170908
  Receipt Date: 20170908
  Transmission Date: 20171128
  Serious: Yes (Death)
  Sender: FDA-Public Use
  Company Number: SE-TEVA-803092ROM

PATIENT
  Age: 66 Year
  Sex: Female

DRUGS (3)
  1. PROPIOMAZINE [Suspect]
     Active Substance: PROPIOMAZINE
     Route: 065
  2. VERAPAMIL [Concomitant]
     Active Substance: VERAPAMIL HYDROCHLORIDE
     Route: 065
  3. LITHIUM. [Suspect]
     Active Substance: LITHIUM
     Route: 065

REACTIONS (4)
  - Pulmonary oedema [Fatal]
  - Goitre [Fatal]
  - Cardiac hypertrophy [Fatal]
  - Toxicity to various agents [Fatal]
